FAERS Safety Report 11445109 (Version 1)
Quarter: 2015Q3

REPORT INFORMATION
  Report Type: Spontaneous
  Country: US (occurrence: None)
  Receive Date: 20150901
  Receipt Date: 20150901
  Transmission Date: 20151125
  Serious: No
  Sender: FDA-Public Use
  Company Number: None

PATIENT
  Age: 56 Year
  Sex: Female
  Weight: 88.45 kg

DRUGS (2)
  1. VITAMIN C [Concomitant]
     Active Substance: ASCORBIC ACID
  2. LEVOTHYROXIN [Suspect]
     Active Substance: LEVOTHYROXINE
     Indication: THYROIDECTOMY
     Dosage: TAKEN BY MOUTH
     Dates: start: 20150820, end: 20150829

REACTIONS (7)
  - Paraesthesia oral [None]
  - Cheilitis [None]
  - Throat irritation [None]
  - Lip swelling [None]
  - Joint swelling [None]
  - Cardiac disorder [None]
  - Erythema [None]

NARRATIVE: CASE EVENT DATE: 20150820
